FAERS Safety Report 8365037-9 (Version None)
Quarter: 2012Q2

REPORT INFORMATION
  Report Type: 
  Country: None (occurrence: None)
  Receive Date: 20120514
  Receipt Date: 20120501
  Transmission Date: 20120825
  Serious: Yes (Hospitalization, Other)
  Sender: FDA-Public Use
  Company Number: IMP_05880_2012

PATIENT
  Age: 55 Year
  Sex: Female

DRUGS (4)
  1. METFORMIN HCL [Suspect]
     Indication: TYPE 2 DIABETES MELLITUS
     Dosage: 1000 MG, TID
  2. ATENOLOL [Concomitant]
  3. SIMVASTATIN [Concomitant]
  4. RAMIPRIL [Concomitant]

REACTIONS (11)
  - BLOOD CREATININE INCREASED [None]
  - VOMITING [None]
  - BLOOD POTASSIUM INCREASED [None]
  - LACTIC ACIDOSIS [None]
  - FATIGUE [None]
  - SOMNOLENCE [None]
  - ELECTROCARDIOGRAM T WAVE PEAKED [None]
  - DEPRESSED LEVEL OF CONSCIOUSNESS [None]
  - BLOOD PRESSURE IMMEASURABLE [None]
  - GLOMERULAR FILTRATION RATE DECREASED [None]
  - CONTINUOUS HAEMODIAFILTRATION [None]
